FAERS Safety Report 14840113 (Version 2)
Quarter: 2019Q1

REPORT INFORMATION
  Report Type: Report from Study
  Country: DE (occurrence: DE)
  Receive Date: 20180503
  Receipt Date: 20190328
  Transmission Date: 20190417
  Serious: Yes (Hospitalization, Other)
  Sender: FDA-Public Use
  Company Number: DE-ACCORD-066411

PATIENT
  Age: 78 Year
  Sex: Male
  Weight: 84 kg

DRUGS (18)
  1. DOMPERIDONE [Concomitant]
     Active Substance: DOMPERIDONE
     Dosage: 30 MG
     Route: 048
  2. CLOPIDOGREL [Concomitant]
     Active Substance: CLOPIDOGREL BISULFATE
     Dosage: 76 MILLIGRAM
     Route: 048
  3. NOVALGIN [Concomitant]
     Indication: PRODUCT USED FOR UNKNOWN INDICATION
     Dosage: 4000MG
     Route: 048
  4. ZOFRAN [Concomitant]
     Active Substance: ONDANSETRON HYDROCHLORIDE
     Indication: NAUSEA
     Route: 041
     Dates: start: 20170404
  5. ABSTRAL [Concomitant]
     Active Substance: FENTANYL CITRATE
     Indication: PAIN
     Dosage: AS REQUIRED, UP TO 4/DAY
     Route: 060
  6. SODIUM CHLORIDE. [Concomitant]
     Active Substance: SODIUM CHLORIDE
     Route: 041
     Dates: start: 20170411, end: 20170411
  7. PALLADON [Concomitant]
     Active Substance: HYDROMORPHONE
     Indication: PAIN
     Dosage: REDUCED FROM 2X24 MG?DOSE 2 (UNK UNIT)
     Route: 048
     Dates: start: 20170214
  8. ONDANSETRON [Concomitant]
     Active Substance: ONDANSETRON
     Route: 041
  9. SIFROL [Concomitant]
     Active Substance: PRAMIPEXOLE
     Dosage: 1.57 MILLIGRAM?REDUCED FROM 2XDAILY
     Route: 048
     Dates: start: 20170413
  10. PANTOPRAZOLE [Concomitant]
     Active Substance: PANTOPRAZOLE
     Indication: CONSTIPATION
     Dosage: 80 MILLIGRAM
     Route: 048
  11. MCP [Concomitant]
     Active Substance: METOCLOPRAMIDE HYDROCHLORIDE
     Route: 048
     Dates: start: 20170411, end: 20170411
  12. GEMCITABINE/GEMCITABINE HYDROCHLORIDE [Suspect]
     Active Substance: GEMCITABINE\GEMCITABINE HYDROCHLORIDE
     Indication: PANCREATIC CARCINOMA METASTATIC
     Dosage: 2050 MG, QD (1000 MG/M2)
     Route: 041
     Dates: start: 20170404, end: 20170418
  13. MACROGOL/POTASSIUM CHLORIDE/SODIUM BICARBONATE [Concomitant]
     Indication: CONSTIPATION
     Dosage: 7.5 MILLIGRAM
     Route: 048
  14. METOCLOPRAMIDE. [Concomitant]
     Active Substance: METOCLOPRAMIDE
     Indication: NAUSEA
     Dosage: 30 MG
     Route: 048
     Dates: start: 20170404, end: 20170418
  15. ABRAXANE [Suspect]
     Active Substance: PACLITAXEL
     Indication: PANCREATIC CARCINOMA METASTATIC
     Dosage: 256 MG,QD (125 MG/M2 )
     Route: 041
     Dates: start: 20170307, end: 20170418
  16. HALOPERIDOL. [Concomitant]
     Active Substance: HALOPERIDOL
     Indication: CONSTIPATION
     Dosage: 15 MILLIGRAM
     Route: 048
  17. VOMEX [Concomitant]
     Active Substance: DIMENHYDRINATE
     Indication: NAUSEA
     Dosage: 2-3 DAILY
     Route: 048
  18. ZOPICLONE [Concomitant]
     Active Substance: ZOPICLONE
     Indication: CONSTIPATION
     Dosage: 7.5 MILLIGRAM
     Route: 048

REACTIONS (7)
  - Abdominal pain [Recovered/Resolved]
  - Device related infection [Recovered/Resolved]
  - C-reactive protein increased [Not Recovered/Not Resolved]
  - Thrombocytopenia [Recovered/Resolved]
  - Leukopenia [Recovered/Resolved]
  - Neutropenia [Recovered/Resolved]
  - Infection [Recovered/Resolved]

NARRATIVE: CASE EVENT DATE: 20170325
